FAERS Safety Report 5505903-2 (Version None)
Quarter: 2007Q4

REPORT INFORMATION
  Report Type: 
  Country: None (occurrence: None)
  Receive Date: 20071102
  Receipt Date: 20071025
  Transmission Date: 20080405
  Serious: Yes (Hospitalization, Other)
  Sender: FDA-Public Use
  Company Number: FR-PFIZER INC-2007090589

PATIENT
  Sex: Male

DRUGS (4)
  1. TAHOR [Suspect]
     Dates: start: 20060701, end: 20070401
  2. TRANXENE [Concomitant]
  3. TEMESTA [Concomitant]
  4. NOCTRAN 10 [Concomitant]

REACTIONS (4)
  - DELIRIUM [None]
  - PARKINSONISM [None]
  - RHABDOMYOLYSIS [None]
  - THERAPEUTIC AGENT TOXICITY [None]
